FAERS Safety Report 5599274-3 (Version None)
Quarter: 2008Q1

REPORT INFORMATION
  Report Type: 
  Country: None (occurrence: None)
  Receive Date: 20080117
  Receipt Date: 20071220
  Transmission Date: 20080703
  Serious: Yes (Hospitalization)
  Sender: FDA-Public Use
  Company Number: 013373

PATIENT
  Age: 46 Year
  Sex: Female
  Weight: 67.6 kg

DRUGS (3)
  1. VERELAN PM [Suspect]
     Indication: HEART RATE INCREASED
     Dosage: 100 MG, ONCE/DAY, ORAL
     Route: 048
     Dates: start: 20071019, end: 20071219
  2. ASPIRIN [Concomitant]
  3. RANITIDINE [Concomitant]

REACTIONS (11)
  - ASTHENIA [None]
  - BLOOD PRESSURE INCREASED [None]
  - CHEST DISCOMFORT [None]
  - FEELING ABNORMAL [None]
  - INSOMNIA [None]
  - LIMB DISCOMFORT [None]
  - MUSCULAR WEAKNESS [None]
  - NAUSEA [None]
  - PAIN [None]
  - TREMOR [None]
  - VEIN PAIN [None]
